FAERS Safety Report 9964403 (Version 1)
Quarter: 2014Q1

REPORT INFORMATION
  Report Type: Spontaneous
  Country: US (occurrence: US)
  Receive Date: 20140305
  Receipt Date: 20140305
  Transmission Date: 20141002
  Serious: Yes (Other)
  Sender: FDA-Public Use
  Company Number: PHHY2014US024312

PATIENT
  Age: 71 Year
  Sex: Male

DRUGS (1)
  1. HEPARIN [Suspect]
     Route: 041

REACTIONS (5)
  - Enterocutaneous fistula [Recovered/Resolved]
  - Duodenal ulcer [Recovered/Resolved]
  - Heparin-induced thrombocytopenia [Recovered/Resolved]
  - Upper gastrointestinal haemorrhage [Recovered/Resolved]
  - Venous thrombosis [Recovered/Resolved]
